FAERS Safety Report 7167024-5 (Version None)
Quarter: 2010Q4

REPORT INFORMATION
  Report Type: 
  Country: None (occurrence: None)
  Receive Date: 20101216
  Receipt Date: 20101213
  Transmission Date: 20110411
  Serious: Yes (Other)
  Sender: FDA-Public Use
  Company Number: B0555775A

PATIENT
  Sex: Female

DRUGS (1)
  1. CLAMOXYL [Suspect]
     Indication: DENTAL CARE
     Dosage: 1G SINGLE DOSE
     Route: 048
     Dates: start: 20081203, end: 20081203

REACTIONS (16)
  - DERMATITIS EXFOLIATIVE [None]
  - DRUG EXPOSURE DURING PREGNANCY [None]
  - DRUG RASH WITH EOSINOPHILIA AND SYSTEMIC SYMPTOMS [None]
  - EOSINOPHILIA [None]
  - FACE OEDEMA [None]
  - HYPERSENSITIVITY [None]
  - HYPOTHYROIDISM [None]
  - LYMPHADENOPATHY [None]
  - OEDEMA PERIPHERAL [None]
  - PRURITUS [None]
  - PYREXIA [None]
  - RASH PAPULAR [None]
  - RASH PUSTULAR [None]
  - RASH SCARLATINIFORM [None]
  - SKIN LESION [None]
  - SKIN TEST POSITIVE [None]
